FAERS Safety Report 14928071 (Version 1)
Quarter: 2018Q2

REPORT INFORMATION
  Report Type: Spontaneous
  Country: GB (occurrence: GB)
  Receive Date: 20180523
  Receipt Date: 20180523
  Transmission Date: 20180711
  Serious: Yes (Other)
  Sender: FDA-Public Use
  Company Number: GB-BAXTER-2018BAX014689

PATIENT
  Age: 8 Year
  Sex: Female

DRUGS (3)
  1. VINBLASTINE [Suspect]
     Active Substance: VINBLASTINE
     Indication: OPTIC GLIOMA
     Dosage: UNK
     Route: 065
     Dates: start: 201503, end: 201605
  2. CISPLATIN. [Suspect]
     Active Substance: CISPLATIN
     Indication: OPTIC GLIOMA
     Dosage: UNK
     Route: 065
     Dates: end: 201307
  3. CYCLOPHOSPHAMIDE INJECTION 1G [Suspect]
     Active Substance: CYCLOPHOSPHAMIDE
     Indication: OPTIC GLIOMA
     Dosage: UNK
     Route: 065
     Dates: end: 201307

REACTIONS (2)
  - Optic glioma [Unknown]
  - Malignant neoplasm progression [Unknown]
